FAERS Safety Report 21489615 (Version 1)
Quarter: 2022Q4

REPORT INFORMATION
  Report Type: Spontaneous
  Country: US (occurrence: US)
  Receive Date: 20221021
  Receipt Date: 20221021
  Transmission Date: 20230113
  Serious: No
  Sender: FDA-Public Use
  Company Number: US-BIOGEN-2022BI01163392

PATIENT
  Sex: Female

DRUGS (1)
  1. TYSABRI [Suspect]
     Active Substance: NATALIZUMAB
     Indication: Multiple sclerosis
     Dosage: INFUSE 300MG INTRAVENOUSLY EVERY 4 WEEKS DILUTED IN 100ML OF 0.9%NACL.
     Route: 050
     Dates: start: 20220125

REACTIONS (1)
  - COVID-19 [Recovered/Resolved]
